FAERS Safety Report 7039486-5 (Version None)
Quarter: 2010Q3

REPORT INFORMATION
  Report Type: 
  Country: None (occurrence: None)
  Receive Date: 20100930
  Receipt Date: 20100914
  Transmission Date: 20110219
  Serious: Yes (Death, Hospitalization)
  Sender: FDA-Public Use
  Company Number: 2010PROUSA00038

PATIENT
  Age: 83 Year
  Sex: Male
  Weight: 83.4 kg

DRUGS (16)
  1. PROVENGE [Suspect]
     Indication: PROSTATE CANCER METASTATIC
     Dosage: 250 ML, SINGLE, INTRAVENOUS
     Route: 042
     Dates: start: 20100723, end: 20100723
  2. PROVENGE [Suspect]
     Indication: PROSTATE CANCER METASTATIC
     Dosage: 250 ML, SINGLE, INTRAVENOUS
     Route: 042
     Dates: start: 20100806, end: 20100806
  3. PROVENGE [Suspect]
  4. PRAZOSIN HCL [Concomitant]
  5. LISINOPRIL [Concomitant]
  6. HYDROCHLOROTHIAZIDE [Concomitant]
  7. XALATAN [Concomitant]
  8. ZOMETA [Concomitant]
  9. LUPRON DEPOT [Concomitant]
  10. CORTISONE ACETATE (CORTISONE ACETATE) [Concomitant]
  11. HYDROCORTONE [Concomitant]
  12. LEUKINE [Concomitant]
  13. PROCRIT [Concomitant]
  14. KETOCONAZOLE [Concomitant]
  15. SOMA [Concomitant]
  16. AVODART [Concomitant]

REACTIONS (11)
  - CARDIO-RESPIRATORY ARREST [None]
  - ERECTILE DYSFUNCTION [None]
  - FALL [None]
  - GRANULOCYTOPENIA [None]
  - LEUKOPENIA [None]
  - NASOPHARYNGITIS [None]
  - NOCTURIA [None]
  - POLLAKIURIA [None]
  - RHINITIS ALLERGIC [None]
  - THROMBOCYTOPENIA [None]
  - TINNITUS [None]
